FAERS Safety Report 17372959 (Version 2)
Quarter: 2020Q1

REPORT INFORMATION
  Report Type: Spontaneous
  Country: PL (occurrence: PL)
  Receive Date: 20200205
  Receipt Date: 20200210
  Transmission Date: 20200409
  Serious: Yes (Life-Threatening, Hospitalization, Other)
  Sender: FDA-Public Use
  Company Number: PL-SA-2020SA021279

PATIENT
  Age: 51 Year
  Sex: Female
  Weight: 90 kg

DRUGS (4)
  1. RIVAROXABAN [Suspect]
     Active Substance: RIVAROXABAN
     Indication: EMBOLISM
     Dosage: 20 MG, QD
     Route: 048
     Dates: start: 2017, end: 201903
  2. ACETYLSALICYLIC ACID [Suspect]
     Active Substance: ASPIRIN
     Indication: EMBOLISM
     Dosage: 75 MG, QD
     Route: 048
     Dates: start: 2017, end: 201903
  3. ENOXAPARIN SODIUM. [Suspect]
     Active Substance: ENOXAPARIN SODIUM
  4. APIXABAN [Concomitant]
     Active Substance: APIXABAN
     Dosage: 5 MG, 2X PER DAY

REACTIONS (5)
  - Drug ineffective [Unknown]
  - Hemiparesis [Unknown]
  - Aphasia [Unknown]
  - Thrombosis [Unknown]
  - Ischaemic stroke [Unknown]

NARRATIVE: CASE EVENT DATE: 201901
